FAERS Safety Report 18701430 (Version 2)
Quarter: 2021Q1

REPORT INFORMATION
  Report Type: Spontaneous
  Country: FR (occurrence: FR)
  Receive Date: 20210105
  Receipt Date: 20210113
  Transmission Date: 20210419
  Serious: Yes (Hospitalization)
  Sender: FDA-Public Use
  Company Number: FR-PFIZER INC-2020516961

PATIENT
  Age: 66 Year
  Sex: Female
  Weight: 76 kg

DRUGS (15)
  1. PRIMPERAN [Concomitant]
     Active Substance: METOCLOPRAMIDE HYDROCHLORIDE
     Indication: NAUSEA
     Dosage: 30 MG, 1X/DAY
     Route: 048
     Dates: start: 20200928
  2. FORLAX [Concomitant]
     Active Substance: POLYETHYLENE GLYCOL 4000
     Indication: CONSTIPATION
     Dosage: 1 TO 3 BAG PER DAY IF CONSTIPATION
     Route: 048
     Dates: start: 20200925, end: 20201113
  3. PANTOPRAZOLE [Concomitant]
     Active Substance: PANTOPRAZOLE
     Indication: DYSPEPSIA
     Dosage: 20 MG, 1X/DAY
     Route: 048
     Dates: start: 20200925, end: 20201113
  4. TOPALGIC [TRAMADOL HYDROCHLORIDE] [Concomitant]
     Active Substance: TRAMADOL HYDROCHLORIDE
     Indication: PAIN
     Dosage: 50 MG, EVERY 4 HOURS IF PAIN
     Route: 048
  5. RITUXIMAB. [Concomitant]
     Active Substance: RITUXIMAB
     Indication: CENTRAL NERVOUS SYSTEM LYMPHOMA
     Dosage: 750 MG/M2, CYCLIC (D1 AND D15 (375MG/M2))
     Route: 041
     Dates: start: 20200821, end: 20201013
  6. CLOBAZAM. [Concomitant]
     Active Substance: CLOBAZAM
     Indication: EPILEPSY
     Dosage: 20 MG, 1X/DAY
     Route: 048
  7. VALACICLOVIR [Concomitant]
     Active Substance: VALACYCLOVIR HYDROCHLORIDE
     Indication: INFECTION
     Dosage: 1000 MG, 1X/DAY
     Dates: start: 20200925
  8. ZOPHREN [ONDANSETRON HYDROCHLORIDE] [Concomitant]
     Active Substance: ONDANSETRON
     Indication: NAUSEA
     Dosage: 2 DF, 1X/DAY
     Route: 048
     Dates: start: 20201008, end: 20201013
  9. OXYBUTYNIN [OXYBUTYNIN HYDROCHLORIDE] [Concomitant]
     Indication: INCONTINENCE
     Dosage: 10 MG, 1X/DAY
     Route: 048
  10. VINCRISTINE SULFATE. [Suspect]
     Active Substance: VINCRISTINE SULFATE
     Indication: CENTRAL NERVOUS SYSTEM LYMPHOMA
     Dosage: 2 MG, CYCLIC (ON DAY 15)
     Route: 041
     Dates: start: 20200821, end: 20201013
  11. METHOTREXATE SODIUM. [Suspect]
     Active Substance: METHOTREXATE SODIUM
     Indication: CENTRAL NERVOUS SYSTEM LYMPHOMA
     Dosage: 7 MG/M2, CYCLIC (AT D2 AND D15 (3.5MG/M2))
     Route: 041
     Dates: start: 20200821, end: 20201013
  12. LOVENOX [Concomitant]
     Active Substance: ENOXAPARIN SODIUM
     Indication: CIRCULATING ANTICOAGULANT
     Dosage: 1 DF, 1X/DAY
     Route: 030
     Dates: start: 20200908
  13. TOPIRAMATE. [Concomitant]
     Active Substance: TOPIRAMATE
     Indication: EPILEPSY
     Dosage: 200 MG, 1X/DAY
     Route: 048
  14. WELLVONE [Concomitant]
     Active Substance: ATOVAQUONE
     Indication: PNEUMONIA
     Dosage: 10 ML, 1X/DAY
     Route: 048
     Dates: start: 20200925
  15. BILASTINE [Concomitant]
     Active Substance: BILASTINE
     Indication: HYPERSENSITIVITY
     Dosage: 20 MG, 1X/DAY
     Route: 048

REACTIONS (1)
  - Leukoencephalopathy [Recovering/Resolving]

NARRATIVE: CASE EVENT DATE: 20201013
